FAERS Safety Report 7208792-3 (Version None)
Quarter: 2011Q1

REPORT INFORMATION
  Report Type: 
  Country: None (occurrence: None)
  Receive Date: 20110104
  Receipt Date: 20050223
  Transmission Date: 20110831
  Serious: Yes (Other)
  Sender: FDA-Public Use
  Company Number: PHHY2005CA02214

PATIENT
  Sex: Male

DRUGS (3)
  1. PEPCID [Concomitant]
     Dosage: UNK
     Route: 048
  2. SANDOSTATIN LAR [Suspect]
     Dosage: 20 MG EVERY 4 WEEKS
     Dates: start: 20050222
  3. IMODIUM [Concomitant]
     Dosage: UNK MG, BID
     Route: 048

REACTIONS (1)
  - INJECTION SITE HYPERSENSITIVITY [None]
